FAERS Safety Report 6061801-X (Version None)
Quarter: 2009Q1

REPORT INFORMATION
  Report Type: 
  Country: None (occurrence: None)
  Receive Date: 20090202
  Receipt Date: 20090120
  Transmission Date: 20090719
  Serious: Yes (Hospitalization)
  Sender: FDA-Public Use
  Company Number: DE-ROCHE-603283

PATIENT
  Sex: Male

DRUGS (8)
  1. PEG-INTERFERON ALFA 2A (RO 25-8310) [Suspect]
     Dosage: VARIABLE DOSES WEEKLY.
     Route: 058
     Dates: start: 20080815, end: 20081008
  2. PEG-INTERFERON ALFA 2A (RO 25-8310) [Suspect]
     Dosage: DOSE: 135 UG
     Route: 058
     Dates: start: 20081009
  3. RIBAVIRIN [Suspect]
     Route: 048
     Dates: start: 20080815, end: 20080912
  4. RIBAVIRIN [Suspect]
     Route: 048
     Dates: start: 20080913
  5. ELTROMBOPAG [Suspect]
     Indication: THROMBOCYTOPENIA
     Route: 048
     Dates: start: 20080718, end: 20080801
  6. ELTROMBOPAG [Suspect]
     Route: 048
     Dates: start: 20080802, end: 20080815
  7. BLINDED ELTROMBOPAG [Suspect]
     Indication: THROMBOCYTOPENIA
     Dosage: DOSE BLINDED.
     Route: 048
     Dates: start: 20080816, end: 20080828
  8. BLINDED ELTROMBOPAG [Suspect]
     Dosage: DOSE BLINDED.
     Route: 048
     Dates: start: 20080829

REACTIONS (2)
  - ERYSIPELAS [None]
  - OEDEMA PERIPHERAL [None]
